FAERS Safety Report 24532989 (Version 1)
Quarter: 2024Q4

REPORT INFORMATION
  Report Type: Spontaneous
  Country: US (occurrence: US)
  Receive Date: 20241022
  Receipt Date: 20241022
  Transmission Date: 20250115
  Serious: No
  Sender: ROCHE
  Company Number: US-ROCHE-10000110305

PATIENT
  Age: 35 Year
  Sex: Female

DRUGS (2)
  1. XOLAIR PFS [Suspect]
     Active Substance: OMALIZUMAB
     Indication: Urticaria
     Dosage: ONGOING, STRENGTH: 150MG/ML
     Route: 058
     Dates: start: 202208
  2. XOLAIR PFS [Suspect]
     Active Substance: OMALIZUMAB

REACTIONS (8)
  - Migraine [Unknown]
  - Transient ischaemic attack [Unknown]
  - Dysarthria [Unknown]
  - Speech disorder [Unknown]
  - Pain [Unknown]
  - Vision blurred [Unknown]
  - Arthralgia [Unknown]
  - Headache [Unknown]

NARRATIVE: CASE EVENT DATE: 20241013
